FAERS Safety Report 23933223 (Version 1)
Quarter: 2024Q2

REPORT INFORMATION
  Report Type: Spontaneous
  Country: JP (occurrence: JP)
  Receive Date: 20240603
  Receipt Date: 20240603
  Transmission Date: 20240716
  Serious: Yes (Life-Threatening)
  Sender: FDA-Public Use
  Company Number: JP-NShinyaku-EVA202403576ZZLILLY

PATIENT
  Sex: Male

DRUGS (9)
  1. TADALAFIL [Suspect]
     Active Substance: TADALAFIL
     Indication: Pollakiuria
     Dosage: 2.5 MG
     Route: 048
     Dates: start: 20240424, end: 20240427
  2. TADALAFIL [Suspect]
     Active Substance: TADALAFIL
     Dosage: 2.5 MG
     Route: 048
     Dates: start: 20240507
  3. TADALAFIL [Suspect]
     Active Substance: TADALAFIL
     Dosage: UNK
  4. NAFTOPIDIL [Concomitant]
     Active Substance: NAFTOPIDIL
     Dosage: UNKNOWN
     Route: 048
     Dates: start: 20221220
  5. NAFTOPIDIL [Concomitant]
     Active Substance: NAFTOPIDIL
     Dosage: UNKNOWN
     Dates: start: 202304
  6. ATORVASTATIN [Concomitant]
     Active Substance: ATORVASTATIN
     Dosage: UNKNOWN
     Route: 048
     Dates: start: 202304
  7. VIBEGRON [Concomitant]
     Active Substance: VIBEGRON
     Dosage: UNKNOWN
     Route: 048
     Dates: start: 20230620
  8. IGURATIMOD [Concomitant]
     Active Substance: IGURATIMOD
     Dosage: UNKNOWN
     Route: 048
     Dates: start: 20220521
  9. RITUXIMAB [Concomitant]
     Active Substance: RITUXIMAB
     Dosage: UNKNOWN
     Route: 041

REACTIONS (2)
  - Lip oedema [Recovered/Resolved]
  - Hot flush [Recovered/Resolved]

NARRATIVE: CASE EVENT DATE: 20240424
